FAERS Safety Report 15470651 (Version 1)
Quarter: 2018Q4

REPORT INFORMATION
  Report Type: Spontaneous
  Country: US (occurrence: US)
  Receive Date: 20181005
  Receipt Date: 20181005
  Transmission Date: 20190205
  Serious: No
  Sender: FDA-Public Use
  Company Number: US-PFIZER INC-2018397084

PATIENT
  Sex: Female
  Weight: 59 kg

DRUGS (1)
  1. ESTRING [Suspect]
     Active Substance: ESTRADIOL
     Indication: URINARY TRACT INFECTION
     Dosage: 2 MG, EVERY 3 MONTHS (MIS 2MG INSERTED VAGINALLY EVERY 3 MONTHS)
     Route: 067

REACTIONS (1)
  - Drug effective for unapproved indication [Not Recovered/Not Resolved]
